FAERS Safety Report 13090402 (Version 2)
Quarter: 2018Q1

REPORT INFORMATION
  Report Type: Spontaneous
  Country: US (occurrence: US)
  Receive Date: 20170105
  Receipt Date: 20180209
  Transmission Date: 20180508
  Serious: No
  Sender: FDA-Public Use
  Company Number: US-ENDO PHARMACEUTICALS INC.-2016-007205

PATIENT
  Sex: Male

DRUGS (3)
  1. FORTESTA [Suspect]
     Active Substance: TESTOSTERONE
     Indication: SECONDARY HYPOGONADISM
     Dosage: SEVEN PUMPS APPLIED DAILY
     Route: 061
  2. FORTESTA [Suspect]
     Active Substance: TESTOSTERONE
     Dosage: NINE PUMPS APPLIED DAILY
     Route: 061
  3. ANTIHYPERTENSIVES [Concomitant]
     Active Substance: UNSPECIFIED INGREDIENT
     Indication: BLOOD PRESSURE ABNORMAL

REACTIONS (3)
  - Intentional product use issue [Not Recovered/Not Resolved]
  - Blood testosterone decreased [Recovered/Resolved]
  - Drug ineffective [Recovered/Resolved]
